FAERS Safety Report 11717945 (Version 1)
Quarter: 2015Q4

REPORT INFORMATION
  Report Type: Spontaneous
  Country: US (occurrence: None)
  Receive Date: 20151109
  Receipt Date: 20151109
  Transmission Date: 20160304
  Serious: Yes (Other)
  Sender: FDA-Public Use
  Company Number: None

PATIENT
  Age: 54 Year
  Sex: Female
  Weight: 49.9 kg

DRUGS (6)
  1. TAMOXIFEN [Concomitant]
     Active Substance: TAMOXIFEN
  2. VITAMIN D [Concomitant]
     Active Substance: CHOLECALCIFEROL
  3. OMNISCAN [Suspect]
     Active Substance: GADODIAMIDE
  4. HEALTHY HANDS AND FEET [Concomitant]
  5. TRAMADOL. [Concomitant]
     Active Substance: TRAMADOL
  6. TYLENOL [Concomitant]
     Active Substance: ACETAMINOPHEN

REACTIONS (6)
  - Blood copper increased [None]
  - Skin texture abnormal [None]
  - Arthralgia [None]
  - Tendon pain [None]
  - Glomerular filtration rate increased [None]
  - Blood heavy metal increased [None]

NARRATIVE: CASE EVENT DATE: 20110720
